FAERS Safety Report 4307662-8 (Version None)
Quarter: 2004Q1

REPORT INFORMATION
  Report Type: 
  Country: None (occurrence: None)
  Receive Date: 20040225
  Receipt Date: 20030909
  Transmission Date: 20041129
  Serious: Yes (Life-Threatening, Hospitalization)
  Sender: FDA-Public Use
  Company Number: WAES 0309USA01064

PATIENT
  Sex: Male

DRUGS (6)
  1. ZOCOR [Suspect]
     Dosage: 40 MG/DAILY/PO
     Route: 048
     Dates: end: 20030901
  2. LEVAQUIN [Concomitant]
  3. PRINIVIL [Concomitant]
  4. ZYPREXA [Concomitant]
  5. DANAZOL [Concomitant]
  6. METFORMIN HCL [Concomitant]

REACTIONS (1)
  - RHABDOMYOLYSIS [None]
